FAERS Safety Report 11468584 (Version 16)
Quarter: 2017Q1

REPORT INFORMATION
  Report Type: Spontaneous
  Country: US (occurrence: US)
  Receive Date: 20150908
  Receipt Date: 20170105
  Transmission Date: 20170428
  Serious: Yes (Hospitalization, Other)
  Sender: FDA-Public Use
  Company Number: US-GLAXOSMITHKLINE-US2015GSK126025

PATIENT
  Age: 37 Year
  Sex: Female

DRUGS (14)
  1. FLOLAN [Suspect]
     Active Substance: EPOPROSTENOL SODIUM
     Dosage: 14 DF, CO
     Route: 042
  2. REVATIO [Concomitant]
     Active Substance: SILDENAFIL CITRATE
     Dosage: UNK
  3. FLOLAN [Suspect]
     Active Substance: EPOPROSTENOL SODIUM
     Indication: PULMONARY ARTERIAL HYPERTENSION
     Dosage: UNK UNK, CO
     Route: 042
     Dates: start: 20150828
  4. FLOLAN [Suspect]
     Active Substance: EPOPROSTENOL SODIUM
     Dosage: 30 DF, CO
     Dates: start: 20150828
  5. FLOLAN [Suspect]
     Active Substance: EPOPROSTENOL SODIUM
     Dosage: 13 DF, CO
  6. FLOLAN [Suspect]
     Active Substance: EPOPROSTENOL SODIUM
     Dosage: 16 DF, CO
  7. LETAIRIS [Concomitant]
     Active Substance: AMBRISENTAN
     Dosage: UNK
  8. FLOLAN [Suspect]
     Active Substance: EPOPROSTENOL SODIUM
     Dosage: UNK UNK, CO
     Route: 042
     Dates: start: 20150828
  9. FLOLAN [Suspect]
     Active Substance: EPOPROSTENOL SODIUM
     Dosage: 19 DF, CO
     Route: 042
     Dates: start: 20150828
  10. FLOLAN [Suspect]
     Active Substance: EPOPROSTENOL SODIUM
     Dosage: 19 DF, CO
     Route: 042
     Dates: start: 20150828
  11. FLOLAN [Suspect]
     Active Substance: EPOPROSTENOL SODIUM
     Dosage: 30 DF, UNK
     Dates: start: 20150828
  12. FLOLAN [Suspect]
     Active Substance: EPOPROSTENOL SODIUM
     Indication: PULMONARY ARTERIAL HYPERTENSION
     Dosage: UNK
  13. FLOLAN [Suspect]
     Active Substance: EPOPROSTENOL SODIUM
     Dosage: UNK
  14. FLOLAN [Suspect]
     Active Substance: EPOPROSTENOL SODIUM
     Dosage: 30 DF, CO

REACTIONS (31)
  - Hospitalisation [Unknown]
  - Infusion site swelling [Unknown]
  - Feeling hot [Unknown]
  - Product preparation error [Unknown]
  - Device use error [Unknown]
  - Emergency care [Unknown]
  - Catheter site infection [Unknown]
  - Pain in jaw [Not Recovered/Not Resolved]
  - Influenza like illness [Unknown]
  - Catheter site haemorrhage [Unknown]
  - Flushing [Not Recovered/Not Resolved]
  - Dizziness [Recovering/Resolving]
  - Syncope [Unknown]
  - Catheter site pain [Unknown]
  - Headache [Not Recovered/Not Resolved]
  - Fatigue [Not Recovered/Not Resolved]
  - Rash [Unknown]
  - Medical observation [Recovered/Resolved]
  - Device connection issue [Unknown]
  - Respiratory distress [Unknown]
  - Decreased appetite [Not Recovered/Not Resolved]
  - Diarrhoea [Unknown]
  - Adverse event [Unknown]
  - Catheter placement [Unknown]
  - Pruritus [Unknown]
  - Catheter site erythema [Unknown]
  - Device issue [Unknown]
  - Complication associated with device [Unknown]
  - Catheter site swelling [Unknown]
  - Pneumonia [Unknown]
  - Catheter removal [Unknown]

NARRATIVE: CASE EVENT DATE: 201508
